FAERS Safety Report 17888580 (Version 1)
Quarter: 2020Q2

REPORT INFORMATION
  Report Type: Spontaneous
  Country: US (occurrence: US)
  Receive Date: 20200611
  Receipt Date: 20200611
  Transmission Date: 20200714
  Serious: Yes (Disabling)
  Sender: FDA-Public Use
  Company Number: None

PATIENT
  Age: 35 Year
  Sex: Female
  Weight: 45 kg

DRUGS (1)
  1. NP THYROID [Suspect]
     Active Substance: LEVOTHYROXINE\LIOTHYRONINE
     Indication: HYPOTHYROIDISM
     Dosage: ?          QUANTITY:90 TABLET(S);?
     Route: 048
     Dates: start: 20190101, end: 20200611

REACTIONS (8)
  - Asthenia [None]
  - Muscular weakness [None]
  - Hot flush [None]
  - Incorrect dose administered [None]
  - Weight decreased [None]
  - Feeling hot [None]
  - Exposure during pregnancy [None]
  - Fatigue [None]

NARRATIVE: CASE EVENT DATE: 20200401
